FAERS Safety Report 5289132-6 (Version None)
Quarter: 2007Q1

REPORT INFORMATION
  Report Type: 
  Country: None (occurrence: None)
  Receive Date: 20070124
  Receipt Date: 20060907
  Transmission Date: 20070707
  Serious: Yes (Other)
  Sender: FDA-Public Use
  Company Number: US200608003356

PATIENT
  Age: 83 Year
  Sex: Female

DRUGS (5)
  1. FORTEO [Suspect]
     Indication: OSTEOPOROSIS
     Dosage: 20 UG, DAILY (1/D)
     Dates: start: 20060601
  2. FORTEO [Concomitant]
  3. LASIX [Concomitant]
  4. DURAGESIC-100 [Concomitant]
  5. PREGABALIN (PREGABALIN) [Concomitant]

REACTIONS (4)
  - BLOOD POTASSIUM DECREASED [None]
  - DEHYDRATION [None]
  - FEELING ABNORMAL [None]
  - SYNCOPE [None]
